FAERS Safety Report 7374896-8 (Version None)
Quarter: 2011Q1

REPORT INFORMATION
  Report Type: 
  Country: None (occurrence: None)
  Receive Date: 20110325
  Receipt Date: 20110302
  Transmission Date: 20110831
  Serious: No
  Sender: FDA-Public Use
  Company Number: US-B.I. PHARMACEUTICALS,INC./RIDGEFIELD-2011-BP-02862BP

PATIENT
  Sex: Female

DRUGS (10)
  1. BYSTOLIC [Concomitant]
     Indication: HYPERTENSION
  2. ISOSORBIDE DINITRATE [Concomitant]
     Indication: ANGINA PECTORIS
  3. SYNTHROID [Concomitant]
     Indication: HYPOTHYROIDISM
  4. RANITIDINE [Concomitant]
     Indication: GASTROOESOPHAGEAL REFLUX DISEASE
  5. LORAZEPAM [Concomitant]
     Indication: INSOMNIA
  6. AMIODARONE HCL [Concomitant]
     Indication: ATRIAL FIBRILLATION
  7. PRADAXA [Suspect]
     Indication: PERIPHERAL EMBOLISM
     Dosage: 300 MG
     Route: 048
     Dates: start: 20110101
  8. PRADAXA [Suspect]
     Indication: ATRIAL FIBRILLATION
  9. ASPIRIN [Suspect]
     Indication: PROPHYLAXIS
     Dates: end: 20110101
  10. DILTIAZEM HCL [Concomitant]
     Indication: HYPERTENSION

REACTIONS (3)
  - DYSPEPSIA [None]
  - COUGH [None]
  - HAEMATOCHEZIA [None]
